FAERS Safety Report 9450813 (Version 1)
Quarter: 2013Q3

REPORT INFORMATION
  Report Type: Spontaneous
  Country: US (occurrence: US)
  Receive Date: 20130809
  Receipt Date: 20130809
  Transmission Date: 20140515
  Serious: Yes (Other)
  Sender: FDA-Public Use
  Company Number: US-BAYER-2013-096477

PATIENT
  Sex: Female

DRUGS (9)
  1. ALEVE CAPLET [Suspect]
     Indication: ANALGESIC THERAPY
     Dosage: 2 UNK, UNK
  2. WARFARIN [Concomitant]
     Indication: ANTICOAGULANT THERAPY
  3. FLECAINIDE [Concomitant]
  4. AMITRIPTYLINE [Concomitant]
  5. LOSARTAN [Concomitant]
  6. AMLODIPINE [Concomitant]
  7. SERTRALINE [Concomitant]
  8. HYDROCODONE [Concomitant]
  9. AMBIEN [Concomitant]

REACTIONS (7)
  - Incorrect dose administered [None]
  - Drug ineffective [None]
  - Hypertension [Recovered/Resolved]
  - Feeling abnormal [Recovered/Resolved]
  - Feeling hot [Recovered/Resolved]
  - Anxiety [Recovered/Resolved]
  - Nausea [None]
